FAERS Safety Report 6062403-1 (Version None)
Quarter: 2009Q1

REPORT INFORMATION
  Report Type: 
  Country: None (occurrence: None)
  Receive Date: 20090202
  Receipt Date: 20090202
  Transmission Date: 20090719
  Serious: Yes (Hospitalization)
  Sender: FDA-Public Use
  Company Number: None

PATIENT
  Age: 52 Year
  Sex: Male
  Weight: 95 kg

DRUGS (2)
  1. INSULIN [Suspect]
     Indication: DIABETES MELLITUS
     Dosage: 40 UNITS SQ
     Route: 058
     Dates: start: 20081021, end: 20090117
  2. INSULIN [Suspect]
     Indication: DIABETES MELLITUS
     Dosage: 4 UNIT BID SQ
     Route: 058
     Dates: start: 20081021, end: 20090117

REACTIONS (1)
  - HYPOGLYCAEMIA [None]
